FAERS Safety Report 24218586 (Version 1)
Quarter: 2024Q3

REPORT INFORMATION
  Report Type: Spontaneous
  Country: MY (occurrence: MY)
  Receive Date: 20240816
  Receipt Date: 20240816
  Transmission Date: 20241017
  Serious: Yes (Hospitalization, Other)
  Sender: NOVARTIS
  Company Number: MY-002147023-NVSC2024MY163395

PATIENT
  Age: 58 Year
  Sex: Female

DRUGS (2)
  1. RIBOCICLIB [Suspect]
     Active Substance: RIBOCICLIB
     Indication: Hormone receptor positive HER2 negative breast cancer
     Dosage: 400 MG, QD
     Route: 065
     Dates: start: 20230118
  2. LETROZOLE [Suspect]
     Active Substance: LETROZOLE
     Indication: Hormone receptor positive HER2 negative breast cancer
     Dosage: 2.5 MG, QD
     Route: 065
     Dates: start: 20230118

REACTIONS (13)
  - Jaundice cholestatic [Unknown]
  - Blood bilirubin increased [Unknown]
  - Liver function test abnormal [Unknown]
  - Neutropenia [Unknown]
  - Osteolysis [Unknown]
  - Malignant neoplasm progression [Unknown]
  - Breast cancer metastatic [Unknown]
  - Lethargy [Unknown]
  - Back pain [Unknown]
  - Hypoaesthesia [Unknown]
  - Osteoporosis [Unknown]
  - Sensory loss [Unknown]
  - Compression fracture [Unknown]

NARRATIVE: CASE EVENT DATE: 20230329
